FAERS Safety Report 8172116 (Version 2)
Quarter: 2013Q1

REPORT INFORMATION
  Report Type: Report from Study
  Country: GB (occurrence: GB)
  Receive Date: 20111007
  Receipt Date: 20130313
  Transmission Date: 20140127
  Serious: Yes (Life-Threatening, Other)
  Sender: FDA-Public Use
  Company Number: GB-CELGENEUS-167-20785-11093715

PATIENT
  Age: 74 Year
  Sex: Male

DRUGS (5)
  1. THALIDOMIDE [Suspect]
     Indication: PLASMA CELL MYELOMA
     Route: 048
     Dates: start: 20110528
  2. THALIDOMIDE [Suspect]
     Dosage: 50 MILLIGRAM
     Route: 048
  3. CYCLOPHOSPHAMID [Suspect]
     Indication: PLASMA CELL MYELOMA
     Route: 048
     Dates: start: 20110528, end: 20110909
  4. DEXAMETHASONE [Suspect]
     Indication: PLASMA CELL MYELOMA
     Route: 048
     Dates: start: 20110528, end: 20110909
  5. DEXAMETHASONE [Suspect]
     Route: 048
     Dates: start: 20110528, end: 20110909

REACTIONS (1)
  - Cerebral infarction [Recovering/Resolving]
